FAERS Safety Report 8555377-2 (Version None)
Quarter: 2012Q3

REPORT INFORMATION
  Report Type: 
  Country: None (occurrence: None)
  Receive Date: 20120731
  Receipt Date: 20111107
  Transmission Date: 20120928
  Serious: Yes (Disabling)
  Sender: FDA-Public Use
  Company Number: US-ASTRAZENECA-2011SE29195

PATIENT
  Age: 52 Year
  Sex: Male
  Weight: 74.4 kg

DRUGS (17)
  1. SEROQUEL [Suspect]
     Indication: ANXIETY
     Route: 048
     Dates: start: 20080101
  2. SEROQUEL [Suspect]
     Route: 048
  3. SEROQUEL [Suspect]
     Dosage: 25 MGS IN AFTERNOON
     Route: 048
  4. SEROQUEL [Suspect]
     Dosage: 25 MGS IN AFTERNOON
     Route: 048
  5. HYDROCHLOROTHIAZIDE [Concomitant]
  6. WELLBUTRIN [Concomitant]
     Indication: BIPOLAR DISORDER
  7. SIMVASTATIN [Concomitant]
     Indication: BLOOD CHOLESTEROL ABNORMAL
  8. SIMVASTATIN [Concomitant]
  9. SEROQUEL [Suspect]
     Route: 048
  10. ATENOLOL [Concomitant]
     Indication: HYPERTENSION
  11. SEROQUEL [Suspect]
     Indication: BIPOLAR DISORDER
     Route: 048
     Dates: start: 20080101
  12. SEROQUEL [Suspect]
     Route: 048
  13. SEROQUEL [Suspect]
     Route: 048
  14. SEROQUEL [Suspect]
     Route: 048
  15. BENZTROPINE MESYLATE [Concomitant]
  16. DICLOFENAC SODIUM [Concomitant]
     Indication: ARTHRITIS
  17. SEROQUEL [Suspect]
     Route: 048

REACTIONS (14)
  - ANXIETY [None]
  - INSOMNIA [None]
  - NAUSEA [None]
  - PRURITUS [None]
  - ABNORMAL BEHAVIOUR [None]
  - FEELING ABNORMAL [None]
  - DRUG DOSE OMISSION [None]
  - HEADACHE [None]
  - DECREASED APPETITE [None]
  - DEPRESSION [None]
  - APHAGIA [None]
  - PARANOIA [None]
  - ANGER [None]
  - TREMOR [None]
